FAERS Safety Report 12906448 (Version 2)
Quarter: 2017Q2

REPORT INFORMATION
  Report Type: Report from Study
  Country: US (occurrence: US)
  Receive Date: 20161103
  Receipt Date: 20170509
  Transmission Date: 20170830
  Serious: Yes (Death)
  Sender: FDA-Public Use
  Company Number: US-BAYER-2016-176164

PATIENT
  Age: 49 Year
  Sex: Female

DRUGS (3)
  1. ADEMPAS [Suspect]
     Active Substance: RIOCIGUAT
     Indication: PULMONARY EMBOLISM
     Dosage: 0.5 MG, TID
     Route: 048
     Dates: start: 20160824, end: 20160914
  2. ADEMPAS [Suspect]
     Active Substance: RIOCIGUAT
     Indication: PULMONARY EMBOLISM
     Dosage: UNK
  3. ADEMPAS [Suspect]
     Active Substance: RIOCIGUAT
     Indication: PULMONARY ARTERIAL HYPERTENSION
     Dosage: 0.5 MG, TID
     Route: 048
     Dates: start: 20160802

REACTIONS (3)
  - Death [Fatal]
  - Fatigue [None]
  - Blood pressure systolic decreased [None]

NARRATIVE: CASE EVENT DATE: 20160831
